FAERS Safety Report 12037036 (Version 1)
Quarter: 2016Q1

REPORT INFORMATION
  Report Type: Spontaneous
  Country: US (occurrence: US)
  Receive Date: 20160208
  Receipt Date: 20160208
  Transmission Date: 20160526
  Serious: Yes (Hospitalization)
  Sender: FDA-Public Use
  Company Number: US-BEH-2016058311

PATIENT
  Age: 68 Year
  Sex: Female
  Weight: 80 kg

DRUGS (23)
  1. HIZENTRA [Suspect]
     Active Substance: HUMAN IMMUNOGLOBULIN G
     Indication: IMMUNODEFICIENCY COMMON VARIABLE
     Route: 058
  2. HYDROCORTISONE. [Concomitant]
     Active Substance: HYDROCORTISONE
  3. CYMBALTA [Concomitant]
     Active Substance: DULOXETINE HYDROCHLORIDE
  4. METHADONE [Concomitant]
     Active Substance: METHADONE HYDROCHLORIDE
  5. MAGNESIUM [Concomitant]
     Active Substance: MAGNESIUM
  6. ACIPHEX [Concomitant]
     Active Substance: RABEPRAZOLE SODIUM
  7. AMITRIPTYLINE [Concomitant]
     Active Substance: AMITRIPTYLINE
  8. NASONEX [Concomitant]
     Active Substance: MOMETASONE FUROATE
  9. SYNTHROID [Concomitant]
     Active Substance: LEVOTHYROXINE SODIUM
  10. MELOXICAM. [Concomitant]
     Active Substance: MELOXICAM
  11. TIZANIDINE. [Concomitant]
     Active Substance: TIZANIDINE
  12. EPIPEN [Concomitant]
     Active Substance: EPINEPHRINE
  13. ZITHROMAX [Concomitant]
     Active Substance: AZITHROMYCIN DIHYDRATE
  14. FLUDROCORTISONE [Concomitant]
     Active Substance: FLUDROCORTISONE
  15. FLOVENT [Concomitant]
     Active Substance: FLUTICASONE PROPIONATE
  16. SIMVASTATIN. [Concomitant]
     Active Substance: SIMVASTATIN
  17. BIOTIN [Concomitant]
     Active Substance: BIOTIN
  18. LYRICA [Concomitant]
     Active Substance: PREGABALIN
  19. POTASSIUM GLUC [Concomitant]
  20. VITAMIN D3 [Concomitant]
     Active Substance: CHOLECALCIFEROL
  21. LEVAQUIN [Concomitant]
     Active Substance: LEVOFLOXACIN
  22. MULTIVITAMINS [Concomitant]
     Active Substance: VITAMINS
  23. CALCIUM CITRATE [Concomitant]
     Active Substance: CALCIUM CITRATE

REACTIONS (1)
  - Pneumonia [Recovered/Resolved]

NARRATIVE: CASE EVENT DATE: 20151231
